FAERS Safety Report 5815449-X (Version None)
Quarter: 2008Q3

REPORT INFORMATION
  Report Type: 
  Country: None (occurrence: None)
  Receive Date: 20080718
  Receipt Date: 20080710
  Transmission Date: 20090109
  Serious: Yes (Other)
  Sender: FDA-Public Use
  Company Number: CA-PFIZER INC-2008045354

PATIENT
  Sex: Male
  Weight: 88.5 kg

DRUGS (1)
  1. CHANTIX [Suspect]
     Indication: SMOKING CESSATION THERAPY
     Route: 048
     Dates: start: 20080506, end: 20080517

REACTIONS (7)
  - AGITATION [None]
  - ANXIETY [None]
  - BLOOD CREATINE PHOSPHOKINASE INCREASED [None]
  - MOOD ALTERED [None]
  - MOOD SWINGS [None]
  - MUSCLE SPASMS [None]
  - SELF-INJURIOUS IDEATION [None]
